FAERS Safety Report 5613318-1 (Version None)
Quarter: 2008Q1

REPORT INFORMATION
  Report Type: 
  Country: None (occurrence: None)
  Receive Date: 20080129
  Receipt Date: 20080118
  Transmission Date: 20080703
  Serious: Yes (Other)
  Sender: FDA-Public Use
  Company Number: 14593

PATIENT
  Age: 61 Year
  Sex: Female

DRUGS (7)
  1. METHOTREXATE [Suspect]
     Indication: RHEUMATOID ARTHRITIS
     Dosage: 50 MG WEEKLY
     Dates: start: 19920101, end: 20060101
  2. ARTHROTEC [Concomitant]
  3. BENDROFLUAZIDE [Concomitant]
  4. CO-CODAMOL [Concomitant]
  5. LISINOPRIL [Concomitant]
  6. PARACETAMOL [Concomitant]
  7. SIMVASTATIN [Concomitant]

REACTIONS (3)
  - GAMMA-GLUTAMYLTRANSFERASE INCREASED [None]
  - HEPATIC CYST [None]
  - OVERDOSE [None]
